FAERS Safety Report 5166768-4 (Version None)
Quarter: 2006Q4

REPORT INFORMATION
  Report Type: 
  Country: None (occurrence: None)
  Receive Date: 20061205
  Receipt Date: 20061205
  Transmission Date: 20070319
  Serious: Yes (Hospitalization)
  Sender: FDA-Public Use
  Company Number: None

PATIENT
  Age: 50 Year
  Weight: 82.2 kg

DRUGS (1)
  1. VICODIN [Suspect]
     Dosage: #14     ONCE      PO
     Route: 048

REACTIONS (5)
  - BLOOD AMYLASE INCREASED [None]
  - HOMICIDAL IDEATION [None]
  - LIPASE INCREASED [None]
  - OVERDOSE [None]
  - SUICIDAL IDEATION [None]
